FAERS Safety Report 24763447 (Version 1)
Quarter: 2024Q4

REPORT INFORMATION
  Report Type: Report from Study
  Country: JP (occurrence: JP)
  Receive Date: 20241222
  Receipt Date: 20241222
  Transmission Date: 20250115
  Serious: Yes (Death, Hospitalization)
  Sender: AMGEN
  Company Number: JP-Vifor (International) Inc.-VIT-2024-00759

PATIENT
  Age: 79 Year
  Sex: Male
  Weight: 62.8 kg

DRUGS (3)
  1. AVACOPAN [Suspect]
     Active Substance: AVACOPAN
     Indication: Microscopic polyangiitis
     Dosage: BID
     Route: 048
     Dates: start: 20230124, end: 20230606
  2. MIZORIBINE [Concomitant]
     Active Substance: MIZORIBINE
     Indication: Death
     Dosage: PERORAL MEDICINE
     Route: 048
     Dates: start: 20230322, end: 20230606
  3. SULFAMETHOXAZOLE\TRIMETHOPRIM [Concomitant]
     Active Substance: SULFAMETHOXAZOLE\TRIMETHOPRIM
     Indication: Antifungal prophylaxis
     Dosage: PERORAL MEDICINE
     Route: 048
     Dates: end: 20230605

REACTIONS (1)
  - Pneumonia necrotising [Fatal]

NARRATIVE: CASE EVENT DATE: 20230321
